FAERS Safety Report 10493368 (Version 1)
Quarter: 2014Q4

REPORT INFORMATION
  Report Type: Spontaneous
  Country: US (occurrence: US)
  Receive Date: 20141002
  Receipt Date: 20141002
  Transmission Date: 20150528
  Serious: No
  Sender: FDA-Public Use
  Company Number: US-GLAXOSMITHKLINE-A1083194A

PATIENT
  Age: 68 Year
  Sex: Female

DRUGS (3)
  1. XANAX [Concomitant]
     Active Substance: ALPRAZOLAM
  2. ADVAIR HFA [Suspect]
     Active Substance: FLUTICASONE PROPIONATE\SALMETEROL XINAFOATE
     Indication: CHRONIC OBSTRUCTIVE PULMONARY DISEASE
     Dosage: 1PUFF SINGLE DOSE
     Route: 055
  3. NEXIUM [Concomitant]
     Active Substance: ESOMEPRAZOLE MAGNESIUM

REACTIONS (3)
  - Throat irritation [Unknown]
  - Hypersensitivity [Recovered/Resolved]
  - Throat tightness [Unknown]

NARRATIVE: CASE EVENT DATE: 20140721
